FAERS Safety Report 11009973 (Version 2)
Quarter: 2015Q2

REPORT INFORMATION
  Report Type: Spontaneous
  Country: US (occurrence: US)
  Receive Date: 20150410
  Receipt Date: 20150421
  Transmission Date: 20150821
  Serious: No
  Sender: FDA-Public Use
  Company Number: US-HORIZON-PRE-0055-2015

PATIENT
  Sex: Female

DRUGS (1)
  1. RAYOS [Suspect]
     Active Substance: PREDNISONE
     Indication: PRODUCT USED FOR UNKNOWN INDICATION

REACTIONS (1)
  - Swelling [Recovered/Resolved]
